FAERS Safety Report 7255877-1 (Version None)
Quarter: 2011Q1

REPORT INFORMATION
  Report Type: 
  Country: None (occurrence: None)
  Receive Date: 20110129
  Receipt Date: 20100503
  Transmission Date: 20110831
  Serious: No
  Sender: FDA-Public Use
  Company Number: US-ABBOTT-10P-163-0638419-00

PATIENT
  Sex: Male
  Weight: 79.45 kg

DRUGS (18)
  1. NEURONTIN [Concomitant]
     Indication: NEURALGIA
  2. ROXYCODONE [Concomitant]
     Indication: BREAKTHROUGH PAIN
  3. NAPROSYN [Concomitant]
     Indication: ANALGESIC THERAPY
  4. ROBAXIN [Concomitant]
     Indication: PRODUCT USED FOR UNKNOWN INDICATION
  5. VITAMIN B-12 [Concomitant]
     Indication: VITAMIN SUPPLEMENTATION
  6. GABAPENTIN [Concomitant]
     Indication: NEURALGIA
  7. PAXIL [Concomitant]
     Indication: ANXIETY
  8. ROXYCODONE [Concomitant]
  9. OXYCONTIN [Concomitant]
     Indication: ANKYLOSING SPONDYLITIS
  10. SENOKOT [Concomitant]
     Indication: PRODUCT USED FOR UNKNOWN INDICATION
  11. KLONOPIN [Concomitant]
     Indication: ANXIETY
     Dosage: 0.5MG - BID AND 1MG AT HS
  12. NAPROSYN [Concomitant]
     Indication: ANKYLOSING SPONDYLITIS
  13. MULTI-VITAMIN [Concomitant]
     Indication: PRODUCT USED FOR UNKNOWN INDICATION
  14. LOVAZA [Concomitant]
     Indication: PRODUCT USED FOR UNKNOWN INDICATION
  15. SULFASALAZINE [Concomitant]
     Indication: PRODUCT USED FOR UNKNOWN INDICATION
  16. HUMIRA [Suspect]
     Indication: ANKYLOSING SPONDYLITIS
  17. HUMIRA [Suspect]
     Dates: start: 20050101
  18. OXYCONTIN [Concomitant]
     Indication: ANALGESIC THERAPY

REACTIONS (2)
  - INJECTION SITE PAIN [None]
  - DRUG EFFECT DECREASED [None]
